FAERS Safety Report 9514932 (Version 1)
Quarter: 2013Q3

REPORT INFORMATION
  Report Type: Spontaneous
  Country: US (occurrence: None)
  Receive Date: 20130909
  Receipt Date: 20130909
  Transmission Date: 20140515
  Serious: Yes (Life-Threatening, Hospitalization)
  Sender: FDA-Public Use
  Company Number: 2013080199

PATIENT
  Age: 20 Year
  Sex: Female

DRUGS (2)
  1. MESALAMINE [Suspect]
     Indication: COLITIS ULCERATIVE
     Dosage: RECTAL
  2. SULFASALAZINE (SULFASALAZINE) [Suspect]
     Indication: COLITIS ULCERATIVE
     Dosage: 2000 MG, (500 MG, 4 IN 1 D) RECTAL

REACTIONS (9)
  - Oedema [None]
  - Myocarditis [None]
  - Hypotension [None]
  - Tachycardia [None]
  - Electrocardiogram T wave amplitude decreased [None]
  - Haemodynamic instability [None]
  - Cardiac tamponade [None]
  - Drug hypersensitivity [None]
  - Pericardial effusion [None]
